FAERS Safety Report 4521092-5 (Version None)
Quarter: 2004Q4

REPORT INFORMATION
  Report Type: 
  Country: None (occurrence: None)
  Receive Date: 20041203
  Receipt Date: 20041116
  Transmission Date: 20050328
  Serious: Yes (Other)
  Sender: FDA-Public Use
  Company Number: PHNU2004DE03901

PATIENT
  Sex: Female

DRUGS (1)
  1. VISUDYNE [Suspect]
     Indication: MACULAR DEGENERATION
     Dates: start: 20030916, end: 20030916

REACTIONS (4)
  - FIBROSIS [None]
  - RETINAL DISORDER [None]
  - RETINAL EXUDATES [None]
  - RETINAL HAEMORRHAGE [None]
